FAERS Safety Report 17276118 (Version 1)
Quarter: 2020Q1

REPORT INFORMATION
  Report Type: Spontaneous
  Country: US (occurrence: US)
  Receive Date: 20200116
  Receipt Date: 20200116
  Transmission Date: 20200409
  Serious: No
  Sender: FDA-Public Use
  Company Number: US-ELI_LILLY_AND_COMPANY-US202001006247

PATIENT
  Age: 68 Year
  Sex: Female

DRUGS (1)
  1. FORTEO [Suspect]
     Active Substance: TERIPARATIDE
     Indication: OSTEOPOROSIS
     Dosage: UNK, UNKNOWN
     Route: 058
     Dates: start: 201810

REACTIONS (5)
  - Rib fracture [Recovering/Resolving]
  - Wrist fracture [Recovering/Resolving]
  - Spinal compression fracture [Unknown]
  - Spinal fracture [Recovering/Resolving]
  - Fall [Recovering/Resolving]
